FAERS Safety Report 5357921-5 (Version None)
Quarter: 2007Q2

REPORT INFORMATION
  Report Type: 
  Country: None (occurrence: None)
  Receive Date: 20070612
  Receipt Date: 20070601
  Transmission Date: 20071010
  Serious: Yes (Other)
  Sender: FDA-Public Use
  Company Number: TPA2007A01123

PATIENT
  Age: 70 Year
  Sex: Female

DRUGS (2)
  1. ACTOS [Suspect]
     Dosage: PER ORAL
     Route: 048
     Dates: start: 20061201
  2. ACTOS [Suspect]
     Dosage: PER ORAL
     Route: 048
     Dates: start: 20070531

REACTIONS (4)
  - ALBUMIN URINE PRESENT [None]
  - ANAEMIA [None]
  - BLOOD CREATININE INCREASED [None]
  - BLOOD UREA INCREASED [None]
